FAERS Safety Report 14901736 (Version 2)
Quarter: 2018Q2

REPORT INFORMATION
  Report Type: Spontaneous
  Country: US (occurrence: US)
  Receive Date: 20180516
  Receipt Date: 20180518
  Transmission Date: 20180711
  Serious: Yes (Other)
  Sender: FDA-Public Use
  Company Number: US-PFIZER INC-2018198125

PATIENT
  Age: 34 Year
  Sex: Female
  Weight: 71.21 kg

DRUGS (1)
  1. SOMAVERT [Suspect]
     Active Substance: PEGVISOMANT
     Indication: ACROMEGALY
     Dosage: 10 MG, 1X/DAY
     Route: 058
     Dates: start: 201712

REACTIONS (2)
  - Injection site mass [Not Recovered/Not Resolved]
  - Injection site hypertrophy [Not Recovered/Not Resolved]

NARRATIVE: CASE EVENT DATE: 201804
